FAERS Safety Report 10365756 (Version 4)
Quarter: 2018Q1

REPORT INFORMATION
  Report Type: Report from Study
  Country: US (occurrence: US)
  Receive Date: 20140806
  Receipt Date: 20180326
  Transmission Date: 20180508
  Serious: Yes (Hospitalization)
  Sender: FDA-Public Use
  Company Number: US-SA-2014SA102765

PATIENT
  Age: 58 Year
  Sex: Male

DRUGS (2)
  1. FABRAZYME [Suspect]
     Active Substance: AGALSIDASE BETA
     Indication: FABRY^S DISEASE
     Route: 041
     Dates: start: 20040615
  2. FABRAZYME [Suspect]
     Active Substance: AGALSIDASE BETA
     Indication: FABRY^S DISEASE
     Dosage: DOSE:70.00?FREQUENCY:Q2
     Route: 041

REACTIONS (7)
  - Headache [Recovered/Resolved]
  - Cerebrovascular accident [Recovering/Resolving]
  - Eye pain [Recovered/Resolved]
  - Memory impairment [Recovering/Resolving]
  - Arthralgia [Recovering/Resolving]
  - Tremor [Recovering/Resolving]
  - Spinal fusion surgery [Unknown]

NARRATIVE: CASE EVENT DATE: 20140724
